FAERS Safety Report 13001216 (Version 4)
Quarter: 2017Q2

REPORT INFORMATION
  Report Type: Spontaneous
  Country: US (occurrence: US)
  Receive Date: 20161206
  Receipt Date: 20170411
  Transmission Date: 20170830
  Serious: No
  Sender: FDA-Public Use
  Company Number: US-BAYER-2016-229036

PATIENT
  Age: 64 Year
  Sex: Female
  Weight: 71.2 kg

DRUGS (6)
  1. REMODULIN [Suspect]
     Active Substance: TREPROSTINIL
     Indication: PULMONARY ARTERIAL HYPERTENSION
     Dosage: 0.006 ?G/KG, UNK
     Route: 058
     Dates: start: 20151116
  2. REMODULIN [Suspect]
     Active Substance: TREPROSTINIL
     Indication: PULMONARY ARTERIAL HYPERTENSION
     Dosage: 0.06 ?G/KG, UNK
     Route: 058
  3. REMODULIN [Suspect]
     Active Substance: TREPROSTINIL
     Indication: PULMONARY ARTERIAL HYPERTENSION
     Dosage: 0.06 ?G/KG, UNK
  4. ADEMPAS [Suspect]
     Active Substance: RIOCIGUAT
     Indication: PRODUCT USED FOR UNKNOWN INDICATION
     Dosage: UNK
     Route: 065
     Dates: start: 201610, end: 20161231
  5. WARFARIN [Concomitant]
     Active Substance: WARFARIN
     Indication: PRODUCT USED FOR UNKNOWN INDICATION
     Dosage: UNK
  6. OPSUMIT [Concomitant]
     Active Substance: MACITENTAN
     Dosage: UNK

REACTIONS (17)
  - Sinus headache [Unknown]
  - Condition aggravated [Unknown]
  - Intra-abdominal fluid collection [Unknown]
  - Diarrhoea [Unknown]
  - Abdominal distension [Unknown]
  - Oedema [Unknown]
  - Diarrhoea [Unknown]
  - Sinus headache [Unknown]
  - Contusion [Unknown]
  - Diarrhoea [Unknown]
  - Rash [Unknown]
  - Peripheral swelling [Unknown]
  - Blood pressure systolic decreased [Unknown]
  - Oedema peripheral [Unknown]
  - Drug ineffective [None]
  - Headache [Unknown]
  - Malaise [Unknown]

NARRATIVE: CASE EVENT DATE: 2016
